FAERS Safety Report 6942037-4 (Version None)
Quarter: 2010Q3

REPORT INFORMATION
  Report Type: 
  Country: None (occurrence: None)
  Receive Date: 20100823
  Receipt Date: 20100817
  Transmission Date: 20110219
  Serious: Yes (Death, Other)
  Sender: FDA-Public Use
  Company Number: 2010SP042173

PATIENT
  Age: 55 Year
  Sex: Male

DRUGS (9)
  1. SAPHRIS [Suspect]
     Indication: SCHIZOPHRENIA
  2. SAPHRIS [Suspect]
  3. SAPHRIS [Suspect]
  4. SAPHRIS [Suspect]
  5. HYDROCODONE [Concomitant]
  6. SYNTHROID [Concomitant]
  7. DEPAKOTE [Concomitant]
  8. LIDODERM [Concomitant]
  9. ALPRAZOLAM [Concomitant]

REACTIONS (7)
  - AGITATION [None]
  - ALCOHOL ABUSE [None]
  - ANGER [None]
  - COMPLETED SUICIDE [None]
  - HALLUCINATION [None]
  - INCORRECT DOSE ADMINISTERED [None]
  - NERVOUSNESS [None]
